FAERS Safety Report 24025976 (Version 2)
Quarter: 2024Q2

REPORT INFORMATION
  Report Type: Spontaneous
  Country: SE (occurrence: SE)
  Receive Date: 20240628
  Receipt Date: 20240628
  Transmission Date: 20240716
  Serious: No
  Sender: FDA-Public Use
  Company Number: SE-ROCHE-3509691

PATIENT
  Sex: Female

DRUGS (32)
  1. ALECENSA [Suspect]
     Active Substance: ALECTINIB HYDROCHLORIDE
     Indication: Lung neoplasm malignant
     Dosage: 4X 150 MG TABLET?DATE OF LAST DOSE PRIOR TO EVENT: 20/JUL/2023
     Route: 048
     Dates: start: 20220428
  2. AERIUS (DESLORATADINE) [Concomitant]
     Active Substance: DESLORATADINE
  3. ACETYLCYSTEINE [Concomitant]
     Active Substance: ACETYLCYSTEINE
  4. BETAPRED [Concomitant]
     Active Substance: BETAMETHASONE SODIUM PHOSPHATE
  5. BRICANYL [Concomitant]
     Active Substance: TERBUTALINE SULFATE
     Dosage: INHALATION POWDER, 0.25 MG/DOSE
  6. UREA [Concomitant]
     Active Substance: UREA
     Dosage: PLASTIC BOTTLE WITH PUMP, 500G, NUMBER OF WITHDRAWALS 4 DOSE: AS A SOFTENER
  7. ETHYLMORPHINE HYDROCHLORIDE\HERBALS [Concomitant]
     Active Substance: ETHYLMORPHINE HYDROCHLORIDE\HERBALS
     Dosage: 5-10 ML HIGHEST 3-4 TIMES DAILY PRN
     Route: 048
  8. DIFLUCAN [Concomitant]
     Active Substance: FLUCONAZOLE
  9. ELIDEL [Concomitant]
     Active Substance: PIMECROLIMUS
     Dosage: 10 MG/G 1 X 30 GRAMS
  10. PAPAVERINE [Concomitant]
     Active Substance: PAPAVERINE
  11. EMADINE [Concomitant]
     Active Substance: EMEDASTINE DIFUMARATE
     Dosage: 0.5 MG/ML
  12. EPIPEN [Concomitant]
     Active Substance: EPINEPHRINE
  13. FINACEA [Concomitant]
     Active Substance: AZELAIC ACID
  14. FOLIC ACID [Concomitant]
     Active Substance: FOLIC ACID
  15. GLYCOSAMINOGLYCANS [Concomitant]
     Active Substance: GLYCOSAMINOGLYCANS
  16. CALCIUM CARBONATE\CHOLECALCIFEROL [Concomitant]
     Active Substance: CALCIUM CARBONATE\CHOLECALCIFEROL
     Dosage: 500 MG/400 IU
  17. SODIUM PICOSULFATE [Concomitant]
     Active Substance: SODIUM PICOSULFATE
     Dosage: 7.5 MG/ML
  18. LEVOTHYROXINE SODIUM [Concomitant]
     Active Substance: LEVOTHYROXINE SODIUM
  19. LIVOSTIN [Concomitant]
     Active Substance: LEVOCABASTINE HYDROCHLORIDE
     Dosage: 50 MICROG/DOSE
  20. LOPERAMIDE [Concomitant]
     Active Substance: LOPERAMIDE
  21. LOCOBASE [Concomitant]
  22. MAGNESIUM METRIZOATE [Concomitant]
     Dosage: DOSE 1 TABLET 2-3 TIMES DAILY
  23. BROMHEXINE [Concomitant]
     Active Substance: BROMHEXINE
     Dosage: 15 ML 3-N4 TIMES/DAY
  24. NYSTATIN [Concomitant]
     Active Substance: NYSTATIN
     Indication: Fungal infection
     Dosage: 1 ML 4 TIMES DAILY FOR 4 WEEKS.
  25. NASONEX [Concomitant]
     Active Substance: MOMETASONE FUROATE
     Dosage: 2 PUFFS ONCE DAILY FOR A FEW WEEKS, THEN 1 PUFF ONCE DAILY
  26. OMEPRAZOLE [Concomitant]
     Active Substance: DONEPEZIL HYDROCHLORIDE\OMEPRAZOLE\OMEPRAZOLE MAGNESIUM
  27. ACETAMINOPHEN [Concomitant]
     Active Substance: ACETAMINOPHEN
     Dosage: 1-2 TABLETS NO MORE THAN 4 TIMES DAILY?PRN FOR PAIN
  28. ECONAZOLE NITRATE [Concomitant]
     Active Substance: ECONAZOLE NITRATE
  29. PULMICORT TURBUHALER [Concomitant]
     Active Substance: BUDESONIDE
     Indication: Asthma
     Dosage: INHALER,200 DOSES WITHDRAWAL 4, DOSE: 1 DOSE MORNING AND EVENING
  30. METRONIDAZOLE [Concomitant]
     Active Substance: METRONIDAZOLE
     Dosage: APPLIED 1-2 TIMES DAILY IN PERIODS OF 3-4 MONTH
  31. SCHERIPROCT PREDNISOLONE CAPROATE [Concomitant]
     Indication: Haemorrhoids
     Dosage: 1.3 MG/1 MG
  32. CARBOMER [Concomitant]
     Active Substance: CARBOMER
     Dosage: 1 DROP 2-3 TIMES/DAY

REACTIONS (29)
  - Product dispensing error [Unknown]
  - Paraesthesia [Recovering/Resolving]
  - Skin wrinkling [Recovering/Resolving]
  - Cognitive disorder [Recovering/Resolving]
  - Varicose vein [Recovering/Resolving]
  - Hypotension [Recovering/Resolving]
  - Heart rate decreased [Recovering/Resolving]
  - Constipation [Recovering/Resolving]
  - Weight increased [Unknown]
  - Blood potassium decreased [Unknown]
  - Discomfort [Unknown]
  - Disturbance in attention [Unknown]
  - Coordination abnormal [Unknown]
  - Dry skin [Unknown]
  - Hair texture abnormal [Unknown]
  - Onychoclasis [Unknown]
  - Dry eye [Unknown]
  - Vision blurred [Unknown]
  - Oedema [Unknown]
  - Muscle spasms [Unknown]
  - Limb discomfort [Unknown]
  - Asthenia [Unknown]
  - Memory impairment [Unknown]
  - Increased need for sleep [Unknown]
  - Dyspnoea [Unknown]
  - Dry mouth [Unknown]
  - Swelling [Unknown]
  - Photosensitivity reaction [Unknown]
  - Night sweats [Unknown]
